FAERS Safety Report 20178155 (Version 1)
Quarter: 2021Q4

REPORT INFORMATION
  Report Type: Spontaneous
  Country: US (occurrence: US)
  Receive Date: 20211213
  Receipt Date: 20211213
  Transmission Date: 20220303
  Serious: Yes (Other)
  Sender: FDA-Public Use
  Company Number: US-SA-SAC20211209001416

PATIENT
  Age: 4 Year
  Sex: Female

DRUGS (1)
  1. ZANTAC [Suspect]
     Active Substance: RANITIDINE HYDROCHLORIDE
     Indication: Gastrooesophageal reflux disease
     Dosage: 75 MG, QD
     Dates: start: 200602, end: 200706

REACTIONS (4)
  - Brain neoplasm malignant [Unknown]
  - Benign neoplasm of spinal cord [Unknown]
  - Brain neoplasm benign [Unknown]
  - BRAF gene mutation [Unknown]

NARRATIVE: CASE EVENT DATE: 20070501
